FAERS Safety Report 9362613 (Version 1)
Quarter: 2013Q2

REPORT INFORMATION
  Report Type: Spontaneous
  Country: US (occurrence: US)
  Receive Date: 20130622
  Receipt Date: 20130622
  Transmission Date: 20140414
  Serious: No
  Sender: FDA-Public Use
  Company Number: US-US-EMD SERONO, INC.-7084336

PATIENT
  Sex: Male
  Weight: 170 kg

DRUGS (8)
  1. REBIF [Suspect]
     Indication: PRODUCT USED FOR UNKNOWN INDICATION
     Route: 058
     Dates: end: 2011
  2. ZOCOR [Concomitant]
     Route: 048
  3. CITALOPRAM [Concomitant]
     Route: 046
  4. GABAPENTIN [Concomitant]
  5. BACTRIM DS [Concomitant]
     Dosage: 800-160
     Route: 048
  6. MULTIVITAMIN [Concomitant]
     Route: 048
  7. CALCIUM D [Concomitant]
     Route: 046
  8. FISH OIL [Concomitant]
     Route: 048

REACTIONS (2)
  - Oedema peripheral [Not Recovered/Not Resolved]
  - Hepatic enzyme increased [Unknown]
